FAERS Safety Report 4487928-1 (Version None)
Quarter: 2004Q4

REPORT INFORMATION
  Report Type: 
  Country: None (occurrence: None)
  Receive Date: 20041026
  Receipt Date: 20041011
  Transmission Date: 20050328
  Serious: Yes (Other)
  Sender: FDA-Public Use
  Company Number: US_0410107019

PATIENT
  Sex: Female

DRUGS (3)
  1. EVISTA [Suspect]
     Route: 065
  2. FOSAMAX [Concomitant]
  3. HORMONE REPLACEMENT THERAPY [Concomitant]

REACTIONS (1)
  - BREAST CANCER FEMALE [None]
